FAERS Safety Report 20705688 (Version 1)
Quarter: 2022Q2

REPORT INFORMATION
  Report Type: Spontaneous
  Country: US (occurrence: None)
  Receive Date: 20220412
  Receipt Date: 20220412
  Transmission Date: 20220720
  Serious: Yes (Disabling, Other)
  Sender: FDA-Public Use
  Company Number: None

PATIENT
  Sex: Male
  Weight: 126 kg

DRUGS (1)
  1. BELBUCA [Suspect]
     Active Substance: BUPRENORPHINE HYDROCHLORIDE
     Indication: Neuralgia
     Dosage: OTHER STRENGTH : MCG;?OTHER QUANTITY : 1 FILM;?FREQUENCY : EVERY 12 HOURS;?OTHER ROUTE : PLACED ON T
     Route: 050
     Dates: start: 20190301

REACTIONS (3)
  - Dental caries [None]
  - Tooth disorder [None]
  - Tooth extraction [None]
